FAERS Safety Report 6580426-0 (Version None)
Quarter: 2010Q1

REPORT INFORMATION
  Report Type: 
  Country: None (occurrence: None)
  Receive Date: 20100212
  Receipt Date: 20100209
  Transmission Date: 20100710
  Serious: Yes (Death, Hospitalization, Other)
  Sender: FDA-Public Use
  Company Number: PHHY2010GB06913

PATIENT
  Sex: Male

DRUGS (8)
  1. CLOZARIL [Suspect]
     Indication: SCHIZOPHRENIA
     Dosage: 300 MG/DAY
     Dates: start: 20000426
  2. CLOZARIL [Suspect]
     Dosage: UNK
     Dates: end: 20091112
  3. LITHIUM CARBONATE [Concomitant]
     Indication: MOOD SWINGS
     Dosage: 600 MG
     Route: 048
  4. VENLAFAXINE [Concomitant]
     Indication: DEPRESSED MOOD
     Dosage: 150 MG
     Route: 048
  5. ATENOLOL [Concomitant]
     Indication: BLOOD PRESSURE
     Dosage: 50 MG
     Route: 048
  6. EPILIM CHRONO [Concomitant]
     Indication: EPILEPSY
     Dosage: 600 MG
     Route: 048
  7. HYOSCINE HBR HYT [Concomitant]
     Indication: ADVERSE DRUG REACTION
     Dosage: 300 MCG
     Route: 048
  8. ALBUTEROL [Concomitant]
     Indication: DYSPNOEA
     Dosage: 400 MCG
     Route: 048

REACTIONS (6)
  - DEATH [None]
  - EPILEPSY [None]
  - GENERAL PHYSICAL HEALTH DETERIORATION [None]
  - HYPERTENSION [None]
  - HYPOPHAGIA [None]
  - MENTAL IMPAIRMENT [None]
